FAERS Safety Report 17047437 (Version 1)
Quarter: 2019Q4

REPORT INFORMATION
  Report Type: Report from Study
  Country: AU (occurrence: AU)
  Receive Date: 20191119
  Receipt Date: 20191119
  Transmission Date: 20200122
  Serious: Yes (Other)
  Sender: FDA-Public Use
  Company Number: AU-ROCHE-2348800

PATIENT
  Age: 28 Year
  Sex: Male

DRUGS (3)
  1. CHAMPIX [Concomitant]
     Active Substance: VARENICLINE TARTRATE
     Indication: TOBACCO USER
     Route: 048
     Dates: start: 20190607, end: 20190628
  2. ACTEMRA [Suspect]
     Active Substance: TOCILIZUMAB
     Indication: RHEUMATOID ARTHRITIS
     Route: 042
     Dates: start: 20131017
  3. ACTEMRA [Suspect]
     Active Substance: TOCILIZUMAB
     Dosage: (8MG/KG)
     Route: 042
     Dates: start: 20190528

REACTIONS (2)
  - Arthralgia [Not Recovered/Not Resolved]
  - Liver function test abnormal [Recovered/Resolved with Sequelae]

NARRATIVE: CASE EVENT DATE: 20190607
